FAERS Safety Report 15938919 (Version 3)
Quarter: 2019Q4

REPORT INFORMATION
  Report Type: Spontaneous
  Country: US (occurrence: US)
  Receive Date: 20190208
  Receipt Date: 20191111
  Transmission Date: 20200122
  Serious: No
  Sender: FDA-Public Use
  Company Number: US-PFIZER INC-2019053591

PATIENT
  Age: 66 Year
  Sex: Female
  Weight: 72.6 kg

DRUGS (2)
  1. DOFETILIDE. [Suspect]
     Active Substance: DOFETILIDE
     Dosage: UNK
  2. CODEINE [Suspect]
     Active Substance: CODEINE
     Dosage: UNK

REACTIONS (1)
  - Drug hypersensitivity [Unknown]
